FAERS Safety Report 9589332 (Version 1)
Quarter: 2013Q4

REPORT INFORMATION
  Report Type: Spontaneous
  Country: US (occurrence: US)
  Receive Date: 20131003
  Receipt Date: 20131003
  Transmission Date: 20140711
  Serious: No
  Sender: FDA-Public Use
  Company Number: US-AMGEN-USASP2012069558

PATIENT
  Age: 23 Year
  Sex: Female
  Weight: 56.69 kg

DRUGS (1)
  1. ENBREL [Suspect]
     Indication: RHEUMATOID ARTHRITIS
     Dosage: 25 MG, 2 INJECTIONS EVERY FIVE DAYS
     Route: 058
     Dates: start: 20050920, end: 20120828

REACTIONS (1)
  - Drug ineffective [Unknown]
